FAERS Safety Report 19904744 (Version 1)
Quarter: 2021Q4

REPORT INFORMATION
  Report Type: Spontaneous
  Country: US (occurrence: US)
  Receive Date: 20211001
  Receipt Date: 20211001
  Transmission Date: 20220303
  Serious: No
  Sender: FDA-Public Use
  Company Number: US-BIOGEN-2021BI01042017

PATIENT
  Sex: Female

DRUGS (1)
  1. TECFIDERA [Suspect]
     Active Substance: DIMETHYL FUMARATE
     Indication: Product used for unknown indication
     Route: 065

REACTIONS (7)
  - Headache [Unknown]
  - Pallor [Unknown]
  - Dizziness [Recovered/Resolved]
  - Throat tightness [Recovered/Resolved]
  - Limb discomfort [Recovered/Resolved]
  - Nausea [Unknown]
  - Hypersensitivity [Unknown]
